FAERS Safety Report 15323310 (Version 5)
Quarter: 2020Q1

REPORT INFORMATION
  Report Type: Spontaneous
  Country: US (occurrence: US)
  Receive Date: 20180827
  Receipt Date: 20200312
  Transmission Date: 20200409
  Serious: Yes (Hospitalization)
  Sender: FDA-Public Use
  Company Number: US-ACTELION-A-US2018-177726

PATIENT
  Sex: Female
  Weight: 48.53 kg

DRUGS (4)
  1. ADCIRCA [Concomitant]
     Active Substance: TADALAFIL
  2. LETAIRIS [Concomitant]
     Active Substance: AMBRISENTAN
  3. VELETRI [Suspect]
     Active Substance: EPOPROSTENOL
     Dosage: 39 NG/KG, PER MIN
     Route: 042
  4. VELETRI [Suspect]
     Active Substance: EPOPROSTENOL
     Indication: PULMONARY ARTERIAL HYPERTENSION
     Dosage: 35.6 NG/KG, PER MIN
     Route: 042

REACTIONS (14)
  - Pulmonary hypertension [Unknown]
  - Nausea [Unknown]
  - Fluid retention [Unknown]
  - Dizziness [Unknown]
  - Pneumonia [Unknown]
  - Incorrect product administration duration [Unknown]
  - Decreased appetite [Unknown]
  - Cardiac failure [Unknown]
  - Weight increased [Unknown]
  - Malaise [Unknown]
  - Giardiasis [Unknown]
  - Retching [Unknown]
  - Diarrhoea [Unknown]
  - Pelvic pain [Unknown]
